FAERS Safety Report 10058036 (Version 1)
Quarter: 2014Q2

REPORT INFORMATION
  Report Type: Spontaneous
  Country: US (occurrence: None)
  Receive Date: 20140403
  Receipt Date: 20140403
  Transmission Date: 20141212
  Serious: Yes (Life-Threatening, Hospitalization, Disabling)
  Sender: FDA-Public Use
  Company Number: None

PATIENT
  Sex: 0

DRUGS (1)
  1. ASPIRIN 325MG COATED 416 [Suspect]
     Indication: THROMBOTIC STROKE
     Route: 048
     Dates: end: 20140330

REACTIONS (1)
  - Cerebral haemorrhage [None]
